FAERS Safety Report 17218063 (Version 1)
Quarter: 2019Q4

REPORT INFORMATION
  Report Type: Spontaneous
  Country: US (occurrence: US)
  Receive Date: 20191207
  Receipt Date: 20191207
  Transmission Date: 20200122
  Serious: No
  Sender: FDA-Public Use
  Company Number: None

PATIENT
  Age: 11 Year
  Sex: Male

DRUGS (1)
  1. MYCOPHENOLATE SUS 200MG/ML [Suspect]
     Active Substance: MYCOPHENOLIC ACID
     Dosage: ?          OTHER FREQUENCY:OTHER;?
     Route: 048
     Dates: start: 20190401

REACTIONS (1)
  - Product label issue [None]

NARRATIVE: CASE EVENT DATE: 20191207
